FAERS Safety Report 7524735-7 (Version None)
Quarter: 2011Q2

REPORT INFORMATION
  Report Type: 
  Country: None (occurrence: None)
  Receive Date: 20110602
  Receipt Date: 20110602
  Transmission Date: 20111010
  Serious: Yes (Other)
  Sender: FDA-Public Use
  Company Number: None

PATIENT
  Age: 56 Year
  Sex: Female
  Weight: 81.6475 kg

DRUGS (2)
  1. METFORMIN HCL [Suspect]
     Indication: BLOOD GLUCOSE INCREASED
     Dosage: 500 MG TWICE A DAY PO
     Route: 048
     Dates: start: 20110212, end: 20110513
  2. METFORMIN HCL [Suspect]
     Indication: BLOOD GLUCOSE INCREASED
     Dosage: 750 MG ONCE A DAY PO
     Route: 048
     Dates: start: 20110513, end: 20110601

REACTIONS (1)
  - ALOPECIA [None]
